FAERS Safety Report 5811534-7 (Version None)
Quarter: 2008Q3

REPORT INFORMATION
  Report Type: 
  Country: None (occurrence: None)
  Receive Date: 20080716
  Receipt Date: 20080708
  Transmission Date: 20090109
  Serious: Yes (Hospitalization, Other)
  Sender: FDA-Public Use
  Company Number: US-MERCK-0705USA05329

PATIENT
  Age: 51 Year
  Sex: Female

DRUGS (2)
  1. FOSAMAX [Suspect]
     Indication: OSTEOPOROSIS
     Route: 048
  2. HORMONES (UNSPECIFIED) [Concomitant]
     Route: 065
     Dates: start: 19800101

REACTIONS (25)
  - ANXIETY [None]
  - BACK DISORDER [None]
  - BLOOD CHOLESTEROL INCREASED [None]
  - BURNING SENSATION [None]
  - DEPRESSION [None]
  - DRUG INTOLERANCE [None]
  - EAR PAIN [None]
  - HORMONE LEVEL ABNORMAL [None]
  - HYPOAESTHESIA [None]
  - IMPAIRED HEALING [None]
  - LOOSE TOOTH [None]
  - LYME DISEASE [None]
  - MAJOR DEPRESSION [None]
  - OEDEMA MOUTH [None]
  - ORAL INFECTION [None]
  - ORAL PAIN [None]
  - OSTEONECROSIS [None]
  - OSTEOPENIA [None]
  - PAIN IN JAW [None]
  - PALPITATIONS [None]
  - PANIC ATTACK [None]
  - PARAESTHESIA [None]
  - SOMATISATION DISORDER [None]
  - SUICIDAL IDEATION [None]
  - THINKING ABNORMAL [None]
